FAERS Safety Report 8557563-4 (Version None)
Quarter: 2012Q2

REPORT INFORMATION
  Report Type: 
  Country: None (occurrence: None)
  Receive Date: 20120418
  Receipt Date: 20100609
  Transmission Date: 20120825
  Serious: Yes (Other)
  Sender: FDA-Public Use
  Company Number: PHHY2010US26814

PATIENT
  Age: 76 Year
  Sex: Female
  Weight: 85.3 kg

DRUGS (6)
  1. OMEPRAZOLE [Concomitant]
  2. BYSTOLIC [Concomitant]
  3. METFFORMIN HYDROCHLORIDE [Concomitant]
  4. DIOVAN HCT [Suspect]
     Indication: HYPERTENSION
     Dosage: 160/12.5 MG, ORAL; 320/25 MG, ORAL
     Route: 048
     Dates: start: 20100503
  5. LIPITOR [Concomitant]
  6. SYNTHROID [Concomitant]

REACTIONS (4)
  - BLOOD PRESSURE INCREASED [None]
  - BLOOD PRESSURE DECREASED [None]
  - DIZZINESS [None]
  - ASTHENIA [None]
